FAERS Safety Report 4481142-1 (Version None)
Quarter: 2004Q4

REPORT INFORMATION
  Report Type: 
  Country: None (occurrence: None)
  Receive Date: 20041021
  Receipt Date: 20041012
  Transmission Date: 20050328
  Serious: Yes (Other)
  Sender: FDA-Public Use
  Company Number: CA-MERCK-0410CAN00254

PATIENT
  Sex: Male

DRUGS (8)
  1. VIOXX [Suspect]
     Indication: ARTHRITIS
     Route: 048
     Dates: start: 20031027, end: 20040401
  2. [THERAPY UNSPECIFIED] [Concomitant]
     Route: 065
  3. PRAVASTATIN SODIUM [Concomitant]
     Route: 065
  4. GLYBURIDE [Concomitant]
     Route: 065
  5. METFORMIN HYDROCHLORIDE [Concomitant]
     Route: 065
  6. HYDROCHLOROTHIAZIDE AND LISINOPRIL [Concomitant]
     Route: 065
     Dates: start: 20020101
  7. PIOGLITAZONE HYDROCHLORIDE [Concomitant]
     Route: 065
     Dates: start: 20040401, end: 20040901
  8. PIOGLITAZONE HYDROCHLORIDE [Concomitant]
     Route: 065
     Dates: start: 20040901

REACTIONS (9)
  - BLOOD CREATINE PHOSPHOKINASE MB INCREASED [None]
  - BLOOD CREATININE INCREASED [None]
  - CHEST PAIN [None]
  - EYE HAEMORRHAGE [None]
  - GOUT [None]
  - HOT FLUSH [None]
  - RENAL FAILURE [None]
  - RETINAL VEIN OCCLUSION [None]
  - VISUAL DISTURBANCE [None]
